FAERS Safety Report 5075744-1 (Version None)
Quarter: 2006Q3

REPORT INFORMATION
  Report Type: 
  Country: None (occurrence: None)
  Receive Date: 20060809
  Receipt Date: 20051208
  Transmission Date: 20061208
  Serious: No
  Sender: FDA-Public Use
  Company Number: US-AMGEN-KDL160833

PATIENT
  Sex: Female
  Weight: 45.4 kg

DRUGS (1)
  1. PROCRIT [Suspect]
     Indication: RENAL FAILURE CHRONIC
     Dates: start: 20020422

REACTIONS (2)
  - ECZEMA [None]
  - HYPERSENSITIVITY [None]
